FAERS Safety Report 9771362 (Version 4)
Quarter: 2014Q1

REPORT INFORMATION
  Report Type: Spontaneous
  Country: CH (occurrence: CH)
  Receive Date: 20131218
  Receipt Date: 20140219
  Transmission Date: 20141002
  Serious: Yes (Other)
  Sender: FDA-Public Use
  Company Number: PHHY2013CH143003

PATIENT
  Sex: Female

DRUGS (2)
  1. TOBI PODHALER [Suspect]
     Indication: PSEUDOMONAS INFECTION
     Dosage: 28 MG, BID
     Dates: start: 201208
  2. CAYSTON [Concomitant]
     Dosage: UKN, QMO
     Route: 042

REACTIONS (4)
  - Weight decreased [Unknown]
  - Forced expiratory volume decreased [Unknown]
  - Cough [Recovered/Resolved]
  - Dyspnoea [Unknown]
